FAERS Safety Report 6295694-2 (Version None)
Quarter: 2009Q3

REPORT INFORMATION
  Report Type: 
  Country: None (occurrence: None)
  Receive Date: 20090803
  Receipt Date: 20090803
  Transmission Date: 20100115
  Serious: Yes (Disabling)
  Sender: FDA-Public Use
  Company Number: None

PATIENT
  Sex: Female
  Weight: 86.1834 kg

DRUGS (2)
  1. SIMVASTATIN [Suspect]
     Indication: HYPERLIPIDAEMIA
     Dosage: 40 MG 1X DAILY EVE ORAL
     Route: 048
     Dates: start: 20070901
  2. VERAPAMIL [Suspect]
     Indication: HYPERTENSION
     Dosage: 240 MG 1X DAILY EVE ORAL
     Route: 048
     Dates: start: 19990101

REACTIONS (9)
  - ASTHENIA [None]
  - BONE PAIN [None]
  - FALL [None]
  - MUSCULAR WEAKNESS [None]
  - MUSCULOSKELETAL PAIN [None]
  - MYALGIA [None]
  - PAIN IN EXTREMITY [None]
  - PERIARTHRITIS [None]
  - TENDERNESS [None]
